FAERS Safety Report 4565551-8 (Version None)
Quarter: 2005Q1

REPORT INFORMATION
  Report Type: 
  Country: None (occurrence: None)
  Receive Date: 20050126
  Receipt Date: 20050106
  Transmission Date: 20050727
  Serious: Yes (Other)
  Sender: FDA-Public Use
  Company Number: USA050187608

PATIENT
  Age: 67 Year
  Sex: Female
  Weight: 102 kg

DRUGS (3)
  1. ZYPREXA [Suspect]
     Dosage: 7.5 MG DAY
     Dates: end: 20040901
  2. PROZAC [Concomitant]
  3. LORAZEPAM [Concomitant]

REACTIONS (15)
  - ACTIVITIES OF DAILY LIVING IMPAIRED [None]
  - ASTHENIA [None]
  - CATHETERISATION CARDIAC [None]
  - COMMUNICATION DISORDER [None]
  - CRYING [None]
  - DYSPNOEA [None]
  - EMOTIONAL DISTRESS [None]
  - FEELING ABNORMAL [None]
  - FEELING HOT [None]
  - HERPES ZOSTER [None]
  - HYPERHIDROSIS [None]
  - MEMORY IMPAIRMENT [None]
  - PRURITUS [None]
  - WEIGHT DECREASED [None]
  - WEIGHT INCREASED [None]
